FAERS Safety Report 25946736 (Version 1)
Quarter: 2025Q4

REPORT INFORMATION
  Report Type: Spontaneous
  Country: GB (occurrence: GB)
  Receive Date: 20251022
  Receipt Date: 20251022
  Transmission Date: 20260118
  Serious: Yes (Disabling, Other)
  Sender: AUROBINDO
  Company Number: GB-MHRA-MED-202510132015190990-GYCVS

PATIENT
  Sex: Male

DRUGS (1)
  1. PREGABALIN [Suspect]
     Active Substance: PREGABALIN
     Indication: Gout
     Dosage: 50 MILLIGRAM, 3 TIMES A DAY (50MG 3 TIMES DAILY AS PRESCRIBED)
     Route: 065
     Dates: start: 2025

REACTIONS (2)
  - Dyspnoea [Not Recovered/Not Resolved]
  - Medication error [Unknown]

NARRATIVE: CASE EVENT DATE: 20250801
